FAERS Safety Report 15928674 (Version 1)
Quarter: 2019Q1

REPORT INFORMATION
  Report Type: Spontaneous
  Country: US (occurrence: US)
  Receive Date: 20190206
  Receipt Date: 20190206
  Transmission Date: 20190417
  Serious: Yes (Hospitalization, Other)
  Sender: FDA-Public Use
  Company Number: US-OTSUKA-2018_024680

PATIENT
  Sex: Male

DRUGS (1)
  1. ABILIFY [Suspect]
     Active Substance: ARIPIPRAZOLE
     Indication: SCHIZOPHRENIA
     Dosage: 15 MG, QD
     Route: 065

REACTIONS (12)
  - Shoplifting [Recovered/Resolved]
  - Obsessive-compulsive disorder [Unknown]
  - Loss of employment [Unknown]
  - Compulsive sexual behaviour [Recovered/Resolved]
  - Compulsive shopping [Unknown]
  - Suicidal ideation [Recovered/Resolved]
  - Suicide attempt [Recovered/Resolved]
  - Mental disorder [Unknown]
  - Theft [Recovered/Resolved]
  - Economic problem [Unknown]
  - Gambling disorder [Recovered/Resolved]
  - Sexually transmitted disease [Unknown]
